FAERS Safety Report 19733816 (Version 3)
Quarter: 2021Q4

REPORT INFORMATION
  Report Type: Spontaneous
  Country: US (occurrence: US)
  Receive Date: 20210823
  Receipt Date: 20211012
  Transmission Date: 20220303
  Serious: Yes (Other)
  Sender: FDA-Public Use
  Company Number: US-JNJFOC-20210826184

PATIENT
  Age: 10 Decade
  Sex: Female

DRUGS (2)
  1. NEUTROGENA BEACH DEF WATER PLUS SUN PROTECT BR?D SPECT SPF 70 (AV\HOM\ [Suspect]
     Active Substance: AVOBENZONE\HOMOSALATE\OCTISALATE\OCTOCRYLENE
     Indication: Prophylaxis against solar radiation
     Dosage: APPLIED ON LEGS, ARMS, AND NECK ONCE DAILY, WHEN GOING IN THE SUN
     Route: 061
     Dates: end: 2021
  2. NTG ULTRA SHEER SUNSCREEN LOTION SPF100 / SUNBLOCK [Concomitant]
     Indication: Product used for unknown indication
     Route: 061

REACTIONS (1)
  - Neoplasm malignant [Unknown]

NARRATIVE: CASE EVENT DATE: 20210101
